FAERS Safety Report 8297898-6 (Version None)
Quarter: 2012Q2

REPORT INFORMATION
  Report Type: 
  Country: None (occurrence: None)
  Receive Date: 20120419
  Receipt Date: 20120409
  Transmission Date: 20120825
  Serious: Yes (Hospitalization)
  Sender: FDA-Public Use
  Company Number: IN-GENZYME-POMP-1002131

PATIENT
  Age: 17 Year
  Sex: Male

DRUGS (1)
  1. MYOZYME [Suspect]
     Indication: FABRY'S DISEASE
     Dosage: UNK
     Route: 042

REACTIONS (2)
  - LEFT VENTRICULAR FAILURE [None]
  - PLEURAL EFFUSION [None]
